FAERS Safety Report 6266071-5 (Version None)
Quarter: 2009Q3

REPORT INFORMATION
  Report Type: 
  Country: None (occurrence: None)
  Receive Date: 20090713
  Receipt Date: 20090709
  Transmission Date: 20100115
  Serious: No
  Sender: FDA-Public Use
  Company Number: US-EISAI INC.-E2080-00185-SPO-US

PATIENT
  Age: 14 Year
  Sex: Female

DRUGS (1)
  1. BANZEL [Suspect]
     Indication: EPILEPSY
     Route: 048
     Dates: start: 20090601

REACTIONS (2)
  - CONVULSION [None]
  - SOMNOLENCE [None]
